FAERS Safety Report 9940437 (Version 1)
Quarter: 2014Q1

REPORT INFORMATION
  Report Type: Spontaneous
  Country: IN (occurrence: IN)
  Receive Date: 20140303
  Receipt Date: 20140303
  Transmission Date: 20141002
  Serious: Yes (Other)
  Sender: FDA-Public Use
  Company Number: IN-MYLANLABS-2014S1003832

PATIENT
  Age: 3 Year
  Sex: Female
  Weight: 11 kg

DRUGS (9)
  1. BUPIVACAINE [Suspect]
     Indication: EPIDURAL ANAESTHESIA
     Dosage: 10ML OF 0.25% BUPIVACAINE
     Route: 008
  2. LIPID EMULSION [Suspect]
     Indication: VENTRICULAR TACHYCARDIA
     Dosage: 15ML OF 20% LIPID EMULSION
     Route: 040
  3. LIPID EMULSION [Suspect]
     Indication: VENTRICULAR TACHYCARDIA
     Dosage: 150 ML/H OF 20% LIPID EMULSION
     Route: 041
  4. LIPID EMULSION [Suspect]
     Indication: VENTRICULAR TACHYCARDIA
     Dosage: 5ML OF 20% LIPID EMULSION
     Route: 040
  5. EPINEPHRINE [Suspect]
     Indication: VENTRICULAR TACHYCARDIA
     Dosage: 30 MICROG/KG
     Route: 042
  6. SEVOFLURANE [Concomitant]
     Indication: INDUCTION OF ANAESTHESIA
     Route: 065
  7. SUXAMETHONIUM CHLORIDE [Concomitant]
     Route: 042
  8. ATRACURIUM BESILATE [Concomitant]
     Route: 065
  9. SEVOFLURANE [Concomitant]
     Indication: MAINTENANCE OF ANAESTHESIA
     Route: 065

REACTIONS (4)
  - Ventricular tachycardia [Recovered/Resolved]
  - Respiratory distress [Recovered/Resolved]
  - Accidental overdose [Recovered/Resolved]
  - Medication error [Recovered/Resolved]
